FAERS Safety Report 5310423-4 (Version None)
Quarter: 2007Q2

REPORT INFORMATION
  Report Type: 
  Country: None (occurrence: None)
  Receive Date: 20070427
  Receipt Date: 20070417
  Transmission Date: 20071010
  Serious: Yes (Other)
  Sender: FDA-Public Use
  Company Number: SE-PFIZER INC-2007031786

PATIENT
  Age: 40 Year
  Sex: Male

DRUGS (1)
  1. CELEBRA [Suspect]
     Indication: ANKYLOSING SPONDYLITIS

REACTIONS (2)
  - MUSCLE SPASMS [None]
  - NEUROPATHY [None]
